FAERS Safety Report 9208754 (Version 2)
Quarter: 2013Q1

REPORT INFORMATION
  Report Type: Spontaneous
  Country: US (occurrence: None)
  Receive Date: 20130221
  Receipt Date: 20130322
  Transmission Date: 20140127
  Serious: Yes (Hospitalization)
  Sender: FDA-Public Use
  Company Number: ACO_34390_2012

PATIENT
  Sex: Male

DRUGS (1)
  1. AMPYRA [Suspect]
     Indication: PRODUCT USED FOR UNKNOWN INDICATION
     Dates: start: 201110, end: 201209

REACTIONS (7)
  - Convulsion [None]
  - Hyperventilation [None]
  - Vomiting [None]
  - Nausea [None]
  - Urinary tract infection [None]
  - Incorrect dose administered [None]
  - Medication error [None]
